FAERS Safety Report 10216990 (Version 2)
Quarter: 2014Q2

REPORT INFORMATION
  Report Type: Spontaneous
  Country: CA (occurrence: CA)
  Receive Date: 20140604
  Receipt Date: 20140604
  Transmission Date: 20141212
  Serious: Yes (Hospitalization)
  Sender: FDA-Public Use
  Company Number: CA-BAXTER-2014BAX026048

PATIENT
  Age: 71 Year
  Sex: Female

DRUGS (3)
  1. EXTRANEAL [Suspect]
     Indication: PERITONEAL DIALYSIS
     Route: 033
  2. PHYSIONEAL 40 GLUCOSE 1.36% SOLUTION FOR PERITONEAL DIALYSIS [Suspect]
     Indication: PERITONEAL DIALYSIS
     Route: 033
  3. PHYSIONEAL 40 GLUCOSE 2.27% SOLUTION FOR PERITONEAL DIALYSIS [Suspect]
     Indication: PERITONEAL DIALYSIS
     Route: 033

REACTIONS (3)
  - Abasia [Not Recovered/Not Resolved]
  - Asthenia [Not Recovered/Not Resolved]
  - Weight decreased [Not Recovered/Not Resolved]
